FAERS Safety Report 24203796 (Version 1)
Quarter: 2024Q3

REPORT INFORMATION
  Report Type: Report from Study
  Country: TH (occurrence: None)
  Receive Date: 20240813
  Receipt Date: 20240813
  Transmission Date: 20241017
  Serious: Yes (Other)
  Sender: ASTRAZENECA
  Company Number: 2023A250949

PATIENT
  Sex: Male

DRUGS (1)
  1. TAGRISSO [Suspect]
     Active Substance: OSIMERTINIB
     Indication: Non-small cell lung cancer metastatic
     Route: 048
     Dates: start: 20190627, end: 20240219

REACTIONS (4)
  - Diverticulitis [Unknown]
  - Atelectasis [Unknown]
  - Cardiomegaly [Unknown]
  - Malignant neoplasm progression [Not Recovered/Not Resolved]
